FAERS Safety Report 7419676-X (Version None)
Quarter: 2011Q2

REPORT INFORMATION
  Report Type: 
  Country: None (occurrence: None)
  Receive Date: 20110412
  Receipt Date: 20110412
  Transmission Date: 20111010
  Serious: Yes (Other)
  Sender: FDA-Public Use
  Company Number: None

PATIENT
  Sex: Male
  Weight: 81.6475 kg

DRUGS (7)
  1. PRAMIPEXOLE DIHYDROCHLORIDE [Concomitant]
  2. TEMOZOLOMIDE [Suspect]
     Indication: CHEMOTHERAPY
     Dosage: 400 MG ONCE DAILY PO
     Route: 048
  3. TEMOZOLOMIDE [Suspect]
     Indication: BRAIN NEOPLASM
     Dosage: 400 MG ONCE DAILY PO
     Route: 048
  4. SIMVASTATIN [Concomitant]
  5. KEPPRA [Concomitant]
  6. NIASPAN [Concomitant]
  7. LISINOPRIL [Concomitant]

REACTIONS (6)
  - FATIGUE [None]
  - NAUSEA [None]
  - DECREASED APPETITE [None]
  - BACK PAIN [None]
  - DIZZINESS [None]
  - CONSTIPATION [None]
